FAERS Safety Report 9841085 (Version 2)
Quarter: 2014Q1

REPORT INFORMATION
  Report Type: Spontaneous
  Country: LT (occurrence: LT)
  Receive Date: 20140124
  Receipt Date: 20140124
  Transmission Date: 20141002
  Serious: Yes (Life-Threatening, Hospitalization)
  Sender: FDA-Public Use
  Company Number: LT-PFIZER INC-2014012411

PATIENT
  Age: 60 Year
  Sex: Female
  Weight: 55 kg

DRUGS (2)
  1. ZELDOX [Suspect]
     Dosage: 30 CAPSULES AS A SINGLE DOSE
     Route: 048
     Dates: start: 20121128
  2. ZOLOFT [Suspect]
     Dosage: 30 TABLETS AS A SINGLE DOSE
     Route: 048
     Dates: start: 20121128

REACTIONS (4)
  - Overdose [Recovered/Resolved]
  - Suicide attempt [Recovered/Resolved]
  - Extrapyramidal disorder [Recovered/Resolved]
  - Somnolence [Recovered/Resolved]
